FAERS Safety Report 25530981 (Version 1)
Quarter: 2025Q3

REPORT INFORMATION
  Report Type: Spontaneous
  Country: US (occurrence: US)
  Receive Date: 20250708
  Receipt Date: 20250708
  Transmission Date: 20251020
  Serious: Yes (Death)
  Sender: ZEALAND PHARMACEUTICALS
  Company Number: US-ZPPROD-ZP25US001108

PATIENT
  Sex: Male

DRUGS (4)
  1. ZEGALOGUE [Suspect]
     Active Substance: DASIGLUCAGON
     Route: 065
  2. TRESIBA [Suspect]
     Active Substance: INSULIN DEGLUDEC
  3. OZEMPIC [Suspect]
     Active Substance: SEMAGLUTIDE
  4. FIASP [Suspect]
     Active Substance: INSULIN ASPART

REACTIONS (1)
  - Death [Fatal]
